FAERS Safety Report 9420314 (Version 1)
Quarter: 2013Q3

REPORT INFORMATION
  Report Type: Spontaneous
  Country: US (occurrence: US)
  Receive Date: 20130725
  Receipt Date: 20130725
  Transmission Date: 20140515
  Serious: No
  Sender: FDA-Public Use
  Company Number: US-ABBOTT-13P-163-1080402-00

PATIENT
  Sex: Female
  Weight: 72.64 kg

DRUGS (8)
  1. SYNTHROID [Suspect]
     Indication: THYROID DISORDER
     Dates: start: 201001
  2. SYNTHROID [Suspect]
  3. SYNTHROID [Suspect]
  4. SYNTHROID [Suspect]
  5. SYNTHROID [Suspect]
  6. SYNTHROID [Suspect]
     Indication: THYROID DISORDER
     Dates: end: 201208
  7. CYTOMEL [Concomitant]
     Indication: THYROID DISORDER
     Dates: start: 201208
  8. VITAMIN D [Concomitant]
     Indication: PRODUCT USED FOR UNKNOWN INDICATION

REACTIONS (2)
  - Drug intolerance [Unknown]
  - Drug ineffective [Unknown]
